FAERS Safety Report 16750174 (Version 1)
Quarter: 2019Q4

REPORT INFORMATION
  Report Type: Spontaneous
  Country: CA (occurrence: CA)
  Receive Date: 20190827
  Receipt Date: 20190827
  Transmission Date: 20200122
  Serious: No
  Sender: FDA-Public Use
  Company Number: None

PATIENT
  Age: 62 Year
  Sex: Female
  Weight: 69.75 kg

DRUGS (3)
  1. CLINDAMYCIN 300MG [Suspect]
     Active Substance: CLINDAMYCIN PHOSPHATE
     Dates: start: 20190612, end: 20190626
  2. AMOXICILLIN 500MG [Suspect]
     Active Substance: AMOXICILLIN
     Dates: start: 20190607, end: 20190611
  3. CVS HEALTH PROBIOTIC DIETARY SUPPLEMENT - 3 BILLION CFU [Suspect]
     Active Substance: DIETARY SUPPLEMENT\PROBIOTICS
     Indication: PROBIOTIC THERAPY
     Route: 048
     Dates: start: 20190713, end: 20190716

REACTIONS (7)
  - Frequent bowel movements [None]
  - Proctalgia [None]
  - Faeces discoloured [None]
  - Anal haemorrhage [None]
  - Extra dose administered [None]
  - Diarrhoea [None]
  - Defaecation urgency [None]

NARRATIVE: CASE EVENT DATE: 20190714
